FAERS Safety Report 5370497-1 (Version None)
Quarter: 2007Q2

REPORT INFORMATION
  Report Type: 
  Country: None (occurrence: None)
  Receive Date: 20070625
  Receipt Date: 20070625
  Transmission Date: 20071010
  Serious: Yes (Hospitalization)
  Sender: FDA-Public Use
  Company Number: None

PATIENT
  Age: 55 Year
  Sex: Male

DRUGS (2)
  1. QUETIAPINE FUMARATE [Suspect]
     Indication: DEPRESSION
     Dosage: 100MG EVERY DAY PO
     Route: 048
     Dates: start: 20070516, end: 20070517
  2. QUETIAPINE FUMARATE [Suspect]
     Indication: POST-TRAUMATIC STRESS DISORDER
     Dosage: 100MG EVERY DAY PO
     Route: 048
     Dates: start: 20070516, end: 20070517

REACTIONS (4)
  - DIZZINESS [None]
  - ERYTHEMA MULTIFORME [None]
  - HYPOTENSION [None]
  - URTICARIA [None]
